FAERS Safety Report 12557568 (Version 1)
Quarter: 2016Q3

REPORT INFORMATION
  Report Type: Report from Study
  Country: RO (occurrence: RO)
  Receive Date: 20160714
  Receipt Date: 20160714
  Transmission Date: 20161109
  Serious: Yes (Death)
  Sender: FDA-Public Use
  Company Number: RO-ASTELLAS-2016US026179

PATIENT

DRUGS (2)
  1. CILOPEN [Concomitant]
     Indication: PRODUCT USED FOR UNKNOWN INDICATION
     Dosage: UNK UNK, UNKNOWN FREQ.
     Route: 042
     Dates: start: 20151001, end: 20151006
  2. MICAFUNGIN [Suspect]
     Active Substance: MICAFUNGIN
     Indication: SYSTEMIC CANDIDA
     Route: 065
     Dates: start: 20151001

REACTIONS (1)
  - Death [Fatal]

NARRATIVE: CASE EVENT DATE: 20151007
